FAERS Safety Report 14587592 (Version 1)
Quarter: 2018Q1

REPORT INFORMATION
  Report Type: Report from Study
  Country: NL (occurrence: NL)
  Receive Date: 20180301
  Receipt Date: 20180301
  Transmission Date: 20180509
  Serious: Yes (Other)
  Sender: FDA-Public Use
  Company Number: NL-CELLTRION INC.-2018NL018181

PATIENT

DRUGS (5)
  1. INFLIXIMAB (UNKNOWN) [Suspect]
     Active Substance: INFLIXIMAB
     Indication: PRODUCT USED FOR UNKNOWN INDICATION
     Dosage: UNK
     Route: 065
  2. CELEBREX [Concomitant]
     Active Substance: CELECOXIB
     Dosage: 100 MG, PRN
  3. THIOSIX [Suspect]
     Active Substance: THIOGUANINE ANHYDROUS
     Indication: INFLAMMATORY BOWEL DISEASE
     Dosage: 20 MG, DAILY
     Route: 065
  4. MOVICOLON [Concomitant]
     Active Substance: POLYETHYLENE GLYCOL 3350\POTASSIUM CHLORIDE\SODIUM BICARBONATE\SODIUM CHLORIDE
     Dosage: UNK, PRN
  5. REMSIMA [Concomitant]
     Active Substance: INFLIXIMAB
     Indication: INFLAMMATORY BOWEL DISEASE
     Dosage: 5 MG/KG,8 WEEKS
     Route: 065

REACTIONS (4)
  - Toxic skin eruption [Recovered/Resolved]
  - Skin exfoliation [Recovered/Resolved]
  - Rash [Recovered/Resolved]
  - Eczema [Recovered/Resolved]

NARRATIVE: CASE EVENT DATE: 20161223
